FAERS Safety Report 17367396 (Version 3)
Quarter: 2020Q1

REPORT INFORMATION
  Report Type: Spontaneous
  Country: RO (occurrence: RO)
  Receive Date: 20200204
  Receipt Date: 20200224
  Transmission Date: 20200409
  Serious: Yes (Death, Other)
  Sender: FDA-Public Use
  Company Number: RO-ASTRAZENECA-2019SF72231

PATIENT
  Age: 66 Year
  Sex: Female

DRUGS (6)
  1. CDDP [Concomitant]
     Active Substance: CISPLATIN
     Indication: NEOADJUVANT THERAPY
  2. EPI+CBP+PTX [Concomitant]
     Indication: NEOADJUVANT THERAPY
  3. CTX+CBP [Concomitant]
     Indication: ADJUVANT THERAPY
  4. LYNPARZA [Suspect]
     Active Substance: OLAPARIB
     Indication: OVARIAN CANCER
     Route: 048
     Dates: start: 2017
  5. LYNPARZA [Suspect]
     Active Substance: OLAPARIB
     Indication: OVARIAN CANCER
     Route: 048
     Dates: start: 201709, end: 2017
  6. CX PT [Concomitant]
     Indication: PALLIATIVE CARE
     Dates: start: 201702, end: 201708

REACTIONS (4)
  - Thrombocytopenia [Fatal]
  - Leukaemia [Unknown]
  - Anaemia [Unknown]
  - Myelodysplastic syndrome [Unknown]

NARRATIVE: CASE EVENT DATE: 2017
